FAERS Safety Report 10674348 (Version 1)
Quarter: 2014Q4

REPORT INFORMATION
  Report Type: Spontaneous
  Country: US (occurrence: None)
  Receive Date: 20141223
  Receipt Date: 20141223
  Transmission Date: 20150529
  Serious: Yes (Other)
  Sender: FDA-Public Use
  Company Number: None

PATIENT
  Age: 54 Year
  Sex: Female
  Weight: 146.97 kg

DRUGS (1)
  1. CEFTIN [Suspect]
     Active Substance: CEFUROXIME AXETIL
     Indication: BRONCHITIS
     Route: 048
     Dates: start: 20141217, end: 20141221

REACTIONS (5)
  - Musculoskeletal disorder [None]
  - Balance disorder [None]
  - Dyskinesia [None]
  - Diarrhoea [None]
  - Muscle contractions involuntary [None]

NARRATIVE: CASE EVENT DATE: 20141222
